FAERS Safety Report 20635560 (Version 1)
Quarter: 2022Q1

REPORT INFORMATION
  Report Type: Spontaneous
  Country: US (occurrence: None)
  Receive Date: 20220324
  Receipt Date: 20220324
  Transmission Date: 20220423
  Serious: Yes (Hospitalization)
  Sender: FDA-Public Use
  Company Number: None

PATIENT
  Sex: Male

DRUGS (2)
  1. TOBRAMYCIN [Suspect]
     Active Substance: TOBRAMYCIN
     Indication: Bronchiectasis
     Dosage: 300 MG/4ML ?INHALE 1 M VIAL (4ML) VIA NEBULIZER TWICE DAILY FOR THREE WEEKS ON, ONE WEEK OFF, THEN R
     Route: 055
     Dates: start: 20210114
  2. DILAUDID TAB 4MG [Concomitant]

REACTIONS (3)
  - Infection [None]
  - Cystic fibrosis [None]
  - Condition aggravated [None]
